FAERS Safety Report 8265737-5 (Version None)
Quarter: 2012Q2

REPORT INFORMATION
  Report Type: 
  Country: None (occurrence: None)
  Receive Date: 20120403
  Receipt Date: 20120319
  Transmission Date: 20120825
  Serious: Yes (Life-Threatening)
  Sender: FDA-Public Use
  Company Number: B0791002A

PATIENT
  Age: 65 Year
  Sex: Male

DRUGS (1)
  1. CEFUROXIME SODIUM [Suspect]
     Indication: BONE CYST
     Dosage: INTRAVENOUS
     Route: 042

REACTIONS (6)
  - FLUSHING [None]
  - BLOOD PRESSURE DECREASED [None]
  - TACHYPNOEA [None]
  - ANAPHYLACTIC SHOCK [None]
  - CHILLS [None]
  - VOMITING [None]
